FAERS Safety Report 9649044 (Version 61)
Quarter: 2020Q1

REPORT INFORMATION
  Report Type: Report from Study
  Country: CA (occurrence: CA)
  Receive Date: 20131028
  Receipt Date: 20200320
  Transmission Date: 20200409
  Serious: Yes (Hospitalization, Other)
  Sender: FDA-Public Use
  Company Number: CA-ROCHE-1284287

PATIENT
  Age: 58 Year
  Sex: Female
  Weight: 70 kg

DRUGS (16)
  1. TAXOTERE [Suspect]
     Active Substance: DOCETAXEL
     Indication: BREAST CANCER METASTATIC
     Route: 042
     Dates: start: 20130812, end: 201311
  2. PERJETA [Suspect]
     Active Substance: PERTUZUMAB
     Dosage: MAINTENANCE DOSE
     Route: 042
     Dates: start: 20131015, end: 20140422
  3. HERCEPTIN [Suspect]
     Active Substance: TRASTUZUMAB
     Route: 042
     Dates: start: 20131013
  4. KADCYLA [Suspect]
     Active Substance: ADO-TRASTUZUMAB EMTANSINE
     Route: 042
     Dates: start: 20140602, end: 20180516
  5. PERJETA [Suspect]
     Active Substance: PERTUZUMAB
     Indication: HER-2 POSITIVE BREAST CANCER
     Dosage: LOADING DOSE
     Route: 042
     Dates: start: 20130927
  6. CODEINE [Suspect]
     Active Substance: CODEINE
     Indication: COUGH
     Route: 048
  7. KADCYLA [Suspect]
     Active Substance: ADO-TRASTUZUMAB EMTANSINE
     Route: 042
     Dates: start: 20180626, end: 20190128
  8. PERJETA [Suspect]
     Active Substance: PERTUZUMAB
     Route: 042
     Dates: start: 20140602
  9. PROCHLORPERAZINE. [Concomitant]
     Active Substance: PROCHLORPERAZINE
     Route: 065
     Dates: end: 201311
  10. KADCYLA [Suspect]
     Active Substance: ADO-TRASTUZUMAB EMTANSINE
     Indication: BREAST CANCER
     Route: 042
     Dates: start: 20140602, end: 20161212
  11. KADCYLA [Suspect]
     Active Substance: ADO-TRASTUZUMAB EMTANSINE
     Route: 042
     Dates: start: 20171024
  12. KADCYLA [Suspect]
     Active Substance: ADO-TRASTUZUMAB EMTANSINE
     Route: 042
     Dates: start: 20190225
  13. KADCYLA [Suspect]
     Active Substance: ADO-TRASTUZUMAB EMTANSINE
     Route: 042
     Dates: start: 20170103, end: 20180606
  14. HERCEPTIN [Suspect]
     Active Substance: TRASTUZUMAB
     Indication: BREAST CANCER METASTATIC
     Route: 042
     Dates: start: 20130812
  15. PERINDOPRIL [Concomitant]
     Active Substance: PERINDOPRIL
     Route: 048
     Dates: end: 201311
  16. KADCYLA [Suspect]
     Active Substance: ADO-TRASTUZUMAB EMTANSINE
     Route: 042
     Dates: start: 20180606, end: 20190128

REACTIONS (78)
  - Fatigue [Unknown]
  - Dry skin [Not Recovered/Not Resolved]
  - Paraesthesia [Not Recovered/Not Resolved]
  - Pain [Not Recovered/Not Resolved]
  - Cough [Unknown]
  - Platelet count decreased [Not Recovered/Not Resolved]
  - Blood albumin decreased [Not Recovered/Not Resolved]
  - Monocyte count increased [Unknown]
  - Blood magnesium decreased [Unknown]
  - Pulmonary oedema [Unknown]
  - Cataract [Unknown]
  - Paraesthesia [Not Recovered/Not Resolved]
  - Lymphocyte count decreased [Unknown]
  - Blood lactate dehydrogenase increased [Not Recovered/Not Resolved]
  - Neutrophil count decreased [Unknown]
  - Prothrombin time prolonged [Unknown]
  - Blood potassium decreased [Unknown]
  - Blood sodium decreased [Unknown]
  - Blood bilirubin increased [Unknown]
  - Blood creatinine decreased [Unknown]
  - Blood pressure diastolic decreased [Unknown]
  - Blood glucose increased [Unknown]
  - Vomiting [Recovered/Resolved]
  - Decreased appetite [Not Recovered/Not Resolved]
  - Hyperaesthesia [Not Recovered/Not Resolved]
  - Epistaxis [Not Recovered/Not Resolved]
  - Disease progression [Unknown]
  - Haemoglobin decreased [Not Recovered/Not Resolved]
  - Mean platelet volume decreased [Not Recovered/Not Resolved]
  - Blood albumin decreased [Not Recovered/Not Resolved]
  - Serum ferritin decreased [Not Recovered/Not Resolved]
  - Aspartate aminotransferase increased [Unknown]
  - Retinal detachment [Recovering/Resolving]
  - Fatigue [Not Recovered/Not Resolved]
  - Hypoacusis [Not Recovered/Not Resolved]
  - Hot flush [Not Recovered/Not Resolved]
  - Pollakiuria [Not Recovered/Not Resolved]
  - Asthenia [Unknown]
  - Weight decreased [Not Recovered/Not Resolved]
  - Pneumothorax [Unknown]
  - Haemolysis [Unknown]
  - Dry mouth [Not Recovered/Not Resolved]
  - Neuralgia [Not Recovered/Not Resolved]
  - Diarrhoea [Unknown]
  - Therapeutic product effect decreased [Unknown]
  - Blood alkaline phosphatase increased [Unknown]
  - Nasopharyngitis [Recovered/Resolved]
  - Somnolence [Unknown]
  - Myalgia [Unknown]
  - Influenza [Recovered/Resolved]
  - Red blood cell count decreased [Not Recovered/Not Resolved]
  - White blood cell count decreased [Not Recovered/Not Resolved]
  - Red cell distribution width increased [Not Recovered/Not Resolved]
  - Oxygen saturation decreased [Unknown]
  - Pneumonia [Unknown]
  - Peripheral sensorimotor neuropathy [Not Recovered/Not Resolved]
  - Hyperhidrosis [Not Recovered/Not Resolved]
  - Swelling [Not Recovered/Not Resolved]
  - Mucosal inflammation [Unknown]
  - Hypotension [Recovered/Resolved]
  - Abdominal pain upper [Recovered/Resolved]
  - Constipation [Unknown]
  - Onychoclasis [Not Recovered/Not Resolved]
  - Lymphocyte count decreased [Not Recovered/Not Resolved]
  - Jaundice [Unknown]
  - Pain in extremity [Not Recovered/Not Resolved]
  - Dyspepsia [Not Recovered/Not Resolved]
  - White blood cell count decreased [Unknown]
  - Food poisoning [Recovered/Resolved]
  - Dyspnoea [Unknown]
  - Red cell distribution width increased [Unknown]
  - Mean platelet volume decreased [Not Recovered/Not Resolved]
  - Cough [Recovered/Resolved]
  - Flushing [Not Recovered/Not Resolved]
  - Pyrexia [Unknown]
  - Haematocrit decreased [Not Recovered/Not Resolved]
  - Hyperlipidaemia [Unknown]
  - Vascular rupture [Unknown]

NARRATIVE: CASE EVENT DATE: 20130812
